FAERS Safety Report 6665957-7 (Version None)
Quarter: 2010Q1

REPORT INFORMATION
  Report Type: 
  Country: None (occurrence: None)
  Receive Date: 20100326
  Receipt Date: 20090413
  Transmission Date: 20100710
  Serious: Yes (Other)
  Sender: FDA-Public Use
  Company Number: 2009SU0079

PATIENT
  Age: 58 Year
  Sex: Female
  Weight: 104.3273 kg

DRUGS (3)
  1. SULAR [Suspect]
     Indication: HYPERTENSION
     Dosage: 8.5MG, DAILY
     Dates: start: 20090408
  2. GLIPIZIDE [Concomitant]
  3. ACTOS [Concomitant]

REACTIONS (1)
  - DRUG INEFFECTIVE [None]
